FAERS Safety Report 17840262 (Version 5)
Quarter: 2020Q4

REPORT INFORMATION
  Report Type: Spontaneous
  Country: PL (occurrence: PL)
  Receive Date: 20200529
  Receipt Date: 20201023
  Transmission Date: 20210113
  Serious: Yes (Other)
  Sender: FDA-Public Use
  Company Number: PL-MYLANLABS-2020M1051899

PATIENT
  Age: 9 Year
  Sex: Male

DRUGS (27)
  1. TOPOTECAN [Suspect]
     Active Substance: TOPOTECAN HYDROCHLORIDE
     Indication: ALVEOLAR RHABDOMYOSARCOMA
     Dosage: 28 MILLIGRAM/SQ. METER
     Route: 065
  2. TOPOTECAN [Suspect]
     Active Substance: TOPOTECAN HYDROCHLORIDE
     Indication: RHABDOMYOSARCOMA
  3. VINCRISTINE [Suspect]
     Active Substance: VINCRISTINE
     Indication: ALVEOLAR RHABDOMYOSARCOMA
     Dosage: 16.5 MG/M2
     Route: 065
  4. IRINOTECAN [Suspect]
     Active Substance: IRINOTECAN
     Indication: ALVEOLAR RHABDOMYOSARCOMA
     Dosage: 65 MG/M2
     Route: 065
  5. DOXORUBICIN [Suspect]
     Active Substance: DOXORUBICIN
     Indication: RHABDOMYOSARCOMA
     Dosage: 160 MILLIGRAM
     Route: 065
  6. FLUDARABINE [Suspect]
     Active Substance: FLUDARABINE PHOSPHATE
     Indication: ALVEOLAR RHABDOMYOSARCOMA
     Dosage: UNK
  7. TROFOSFAMIDE [Suspect]
     Active Substance: TROFOSFAMIDE
     Dosage: 54000 MG/M2
  8. CARBOPLATIN. [Suspect]
     Active Substance: CARBOPLATIN
     Indication: ACUTE MYELOID LEUKAEMIA
  9. ACTINOMYCIN D [Suspect]
     Active Substance: DACTINOMYCIN
     Indication: ALVEOLAR RHABDOMYOSARCOMA
     Dosage: 3 MG/M2
  10. ETOPOSIDE. [Suspect]
     Active Substance: ETOPOSIDE
     Indication: ACUTE MYELOID LEUKAEMIA
  11. CYTARABINE. [Suspect]
     Active Substance: CYTARABINE
     Indication: ALVEOLAR RHABDOMYOSARCOMA
     Dosage: UNK
     Route: 065
  12. CYCLOPHOSPHAMIDE. [Suspect]
     Active Substance: CYCLOPHOSPHAMIDE
     Indication: ALVEOLAR RHABDOMYOSARCOMA
     Dosage: THERAPY ACCORDING TO CWS-2002 CUMULATIVE DOSE: 1000 MG/M2
     Route: 065
  13. TOPOTECAN [Suspect]
     Active Substance: TOPOTECAN HYDROCHLORIDE
     Indication: ACUTE MYELOID LEUKAEMIA
  14. IRINOTECAN [Suspect]
     Active Substance: IRINOTECAN
     Indication: RHABDOMYOSARCOMA
  15. DOXORUBICIN [Suspect]
     Active Substance: DOXORUBICIN
     Indication: ACUTE MYELOID LEUKAEMIA
  16. ETOPOSIDE. [Suspect]
     Active Substance: ETOPOSIDE
     Indication: ALVEOLAR RHABDOMYOSARCOMA
     Dosage: 3600 MILLIGRAM/SQ. METER
     Route: 042
  17. CARBOPLATIN. [Suspect]
     Active Substance: CARBOPLATIN
     Indication: ALVEOLAR RHABDOMYOSARCOMA
     Dosage: 6600 MG/M2
     Route: 065
  18. TROFOSFAMIDE [Suspect]
     Active Substance: TROFOSFAMIDE
     Indication: ALVEOLAR RHABDOMYOSARCOMA
     Dosage: 12000 MG/M2
  19. DOXORUBICIN [Suspect]
     Active Substance: DOXORUBICIN
     Indication: ALVEOLAR RHABDOMYOSARCOMA
     Dosage: 160 MG/M2
  20. CARBOPLATIN. [Suspect]
     Active Substance: CARBOPLATIN
     Indication: RHABDOMYOSARCOMA
  21. IFOSFAMIDE. [Suspect]
     Active Substance: IFOSFAMIDE
     Indication: ALVEOLAR RHABDOMYOSARCOMA
     Dosage: 54000 MG/M2
     Route: 065
  22. VINCRISTINE [Suspect]
     Active Substance: VINCRISTINE
     Indication: RHABDOMYOSARCOMA
  23. CYCLOPHOSPHAMIDE. [Suspect]
     Active Substance: CYCLOPHOSPHAMIDE
     Indication: RHABDOMYOSARCOMA
  24. IFOSFAMIDE. [Suspect]
     Active Substance: IFOSFAMIDE
     Indication: RHABDOMYOSARCOMA
  25. ETOPOSIDE. [Suspect]
     Active Substance: ETOPOSIDE
     Indication: ALVEOLAR RHABDOMYOSARCOMA
     Dosage: 2000 MILLIGRAM/SQ. METER
     Route: 048
  26. IDARUBICIN HCL [Suspect]
     Active Substance: IDARUBICIN HYDROCHLORIDE
     Indication: ALVEOLAR RHABDOMYOSARCOMA
     Dosage: CUMULATIVE DOSES: 80MG/M2
     Route: 065
  27. IDARUBICIN HCL [Suspect]
     Active Substance: IDARUBICIN HYDROCHLORIDE
     Indication: RHABDOMYOSARCOMA

REACTIONS (16)
  - Myelodysplastic syndrome [Unknown]
  - Chromosome analysis abnormal [Unknown]
  - Pneumonia fungal [Unknown]
  - Thrombocytopenia [Unknown]
  - Toxicity to various agents [Unknown]
  - Refractory anaemia with an excess of blasts [Unknown]
  - Product use in unapproved indication [Unknown]
  - Rhabdomyosarcoma recurrent [Unknown]
  - Hepatosplenomegaly [Unknown]
  - Anaemia [Unknown]
  - Off label use [Unknown]
  - Neoplasm progression [Unknown]
  - Hyperleukocytosis [Unknown]
  - Acute myeloid leukaemia [Unknown]
  - Myelodysplastic syndrome transformation [Unknown]
  - Malignant neoplasm progression [Unknown]

NARRATIVE: CASE EVENT DATE: 2009
